FAERS Safety Report 9184435 (Version 1)
Quarter: 2013Q1

REPORT INFORMATION
  Report Type: Spontaneous
  Country: US (occurrence: US)
  Receive Date: 20130322
  Receipt Date: 20130322
  Transmission Date: 20140127
  Serious: Yes (Hospitalization)
  Sender: FDA-Public Use
  Company Number: US-MEDICIS-2013P1003339

PATIENT
  Age: 89 Year
  Sex: Male

DRUGS (6)
  1. METRONIDAZOLE [Suspect]
     Indication: LEUKOCYTOSIS
  2. VANCOMYCIN [Suspect]
     Indication: LEUKOCYTOSIS
  3. AZITHROMYCIN [Concomitant]
     Indication: PNEUMONIA
  4. AZITHROMYCIN [Concomitant]
  5. PIPERACILLIN/TAZOBACTAM [Concomitant]
     Indication: PNEUMONIA
  6. PIPERACILLIN/TAZOBACTAM [Concomitant]

REACTIONS (4)
  - Acute generalised exanthematous pustulosis [Unknown]
  - Blister [Recovered/Resolved]
  - Pain of skin [Unknown]
  - Skin exfoliation [Unknown]
